FAERS Safety Report 5506026-9 (Version None)
Quarter: 2007Q4

REPORT INFORMATION
  Report Type: 
  Country: None (occurrence: None)
  Receive Date: 20071105
  Receipt Date: 20071030
  Transmission Date: 20080405
  Serious: Yes (Death)
  Sender: FDA-Public Use
  Company Number: JP-AVENTIS-200711616JP

PATIENT
  Age: 80 Year
  Sex: Male
  Weight: 50.5 kg

DRUGS (4)
  1. TAXOTERE [Suspect]
     Route: 042
     Dates: start: 20070425, end: 20070516
  2. LOXONIN                            /00890701/ [Concomitant]
     Route: 048
     Dates: start: 20070314, end: 20070603
  3. PROTECADIN [Concomitant]
     Route: 048
     Dates: start: 20070314, end: 20070603
  4. RADIOTHERAPY [Concomitant]
     Dosage: DOSE: 30GY/TOTAL
     Dates: start: 20070117, end: 20070201

REACTIONS (4)
  - COUGH [None]
  - DYSPNOEA [None]
  - INTERSTITIAL LUNG DISEASE [None]
  - PYREXIA [None]
